FAERS Safety Report 6106288-3 (Version None)
Quarter: 2009Q1

REPORT INFORMATION
  Report Type: 
  Country: None (occurrence: None)
  Receive Date: 20090306
  Receipt Date: 20090226
  Transmission Date: 20090719
  Serious: Yes (Other)
  Sender: FDA-Public Use
  Company Number: PHHY2009FR07238

PATIENT
  Age: 68 Year
  Sex: Female

DRUGS (1)
  1. GLEEVEC [Suspect]
     Dosage: 400 MG/ DAY

REACTIONS (7)
  - CATARACT [None]
  - DACRYOSTENOSIS ACQUIRED [None]
  - EYE INFECTION [None]
  - EYE PAIN [None]
  - EYELID OEDEMA [None]
  - PURULENT DISCHARGE [None]
  - VISION BLURRED [None]
